FAERS Safety Report 5823058-1 (Version None)
Quarter: 2008Q3

REPORT INFORMATION
  Report Type: 
  Country: None (occurrence: None)
  Receive Date: 20080725
  Receipt Date: 20070816
  Transmission Date: 20090109
  Serious: No
  Sender: FDA-Public Use
  Company Number: US-AMGEN-KDL239260

PATIENT
  Sex: Female

DRUGS (9)
  1. PROCRIT [Suspect]
     Indication: RENAL FAILURE CHRONIC
     Dates: start: 19960101
  2. NORVASC [Concomitant]
  3. LISINOPRIL [Concomitant]
  4. LISINOPRIL AND HYDROCHLOROTHIAZIDE [Concomitant]
  5. ATENOLOL [Concomitant]
  6. PROTONIX [Concomitant]
  7. ASPIRIN [Concomitant]
  8. RELAFEN [Concomitant]
  9. SPIRIVA [Concomitant]
     Route: 055

REACTIONS (2)
  - HAEMOGLOBIN DECREASED [None]
  - MALAISE [None]
